FAERS Safety Report 10220600 (Version 1)
Quarter: 2014Q2

REPORT INFORMATION
  Report Type: Spontaneous
  Country: US (occurrence: US)
  Receive Date: 20140606
  Receipt Date: 20140606
  Transmission Date: 20141212
  Serious: No
  Sender: FDA-Public Use
  Company Number: US-TEVA-486610USA

PATIENT
  Sex: Male

DRUGS (2)
  1. COPAXONE 40MG [Suspect]
     Indication: MULTIPLE SCLEROSIS
  2. COPAXONE 20MH [Suspect]
     Indication: MULTIPLE SCLEROSIS

REACTIONS (1)
  - Depression [Unknown]
